FAERS Safety Report 25687947 (Version 1)
Quarter: 2025Q3

REPORT INFORMATION
  Report Type: Spontaneous
  Country: GB (occurrence: GB)
  Receive Date: 20250817
  Receipt Date: 20250817
  Transmission Date: 20251021
  Serious: Yes (Other)
  Sender: BAUSCH AND LOMB
  Company Number: GB-BAUSCH-BL-2014-009840

PATIENT
  Sex: Female

DRUGS (2)
  1. BROMFENAC SODIUM [Suspect]
     Active Substance: BROMFENAC SODIUM
     Indication: Product used for unknown indication
     Route: 047
  2. DEXAMETHASONE SODIUM PHOSPHATE\NEOMYCIN SULFATE [Suspect]
     Active Substance: DEXAMETHASONE SODIUM PHOSPHATE\NEOMYCIN SULFATE
     Indication: Product used for unknown indication
     Route: 065

REACTIONS (5)
  - Chorioretinitis [Recovered/Resolved]
  - Anterior chamber cell [Recovered/Resolved]
  - Vitreous opacities [Recovered/Resolved]
  - Rebound effect [Recovered/Resolved]
  - Visual acuity reduced [Recovering/Resolving]
